FAERS Safety Report 9152515 (Version 1)
Quarter: 2013Q1

REPORT INFORMATION
  Report Type: Spontaneous
  Country: US (occurrence: US)
  Receive Date: 20130308
  Receipt Date: 20130308
  Transmission Date: 20140127
  Serious: No
  Sender: FDA-Public Use
  Company Number: US-PFIZER INC-2013079399

PATIENT
  Age: 51 Year
  Sex: Male
  Weight: 88.44 kg

DRUGS (1)
  1. VIAGRA [Suspect]
     Indication: ERECTILE DYSFUNCTION
     Dosage: 50 MG OR 100 MG AS NEEDED
     Route: 048

REACTIONS (4)
  - Expired drug administered [Unknown]
  - Suspected counterfeit product [Unknown]
  - Drug effect incomplete [Unknown]
  - Hiccups [Unknown]
